FAERS Safety Report 6153115-4 (Version None)
Quarter: 2009Q2

REPORT INFORMATION
  Report Type: 
  Country: None (occurrence: None)
  Receive Date: 20090413
  Receipt Date: 20090406
  Transmission Date: 20091009
  Serious: Yes (Other)
  Sender: FDA-Public Use
  Company Number: US-ELI_LILLY_AND_COMPANY-US200904001344

PATIENT
  Sex: Female

DRUGS (21)
  1. HUMULIN N [Suspect]
     Indication: TYPE 2 DIABETES MELLITUS
     Dosage: 60 U, EACH MORNING
     Dates: start: 19840101
  2. HUMULIN N [Suspect]
     Dosage: 60 U, EACH EVENING
     Dates: start: 19840101
  3. HUMALOG [Suspect]
     Indication: TYPE 2 DIABETES MELLITUS
     Dosage: 34 U, 3/D
  4. HUMALOG [Suspect]
     Dosage: 10 U, EACH EVENING
  5. TRIAMCINOLONE [Concomitant]
  6. NYSTAT [Concomitant]
  7. TEMAZEPAM [Concomitant]
  8. SIMVASTATIN [Concomitant]
  9. FOSINOPRIL SODIUM [Concomitant]
  10. COLCHICINE [Concomitant]
  11. POTASSIUM CHLORIDE [Concomitant]
  12. ALLOPURINOL [Concomitant]
  13. NYSTATIN [Concomitant]
  14. OXYCODONE HCL [Concomitant]
  15. HYDROCODONE BITARTRATE [Concomitant]
  16. FLUCONAZOLE [Concomitant]
  17. TOPROL-XL [Concomitant]
  18. PREMARIN [Concomitant]
  19. NEXIUM [Concomitant]
  20. AMITRIPTYLINE HCL [Concomitant]
  21. FUROSEMIDE [Concomitant]

REACTIONS (3)
  - BLINDNESS [None]
  - BLOOD GLUCOSE INCREASED [None]
  - RETINAL HAEMORRHAGE [None]
